FAERS Safety Report 7474000-1 (Version None)
Quarter: 2011Q2

REPORT INFORMATION
  Report Type: 
  Country: None (occurrence: None)
  Receive Date: 20110511
  Receipt Date: 20081122
  Transmission Date: 20111010
  Serious: Yes (Death, Other)
  Sender: FDA-Public Use
  Company Number: US-BAYER-200839334NA

PATIENT
  Age: 63 Year
  Sex: Male
  Weight: 92.971 kg

DRUGS (17)
  1. GLUCOTROL [Concomitant]
     Dosage: 10 MG, QD
     Route: 048
  2. LISINOPRIL [Concomitant]
     Dosage: 10 MG, UNK
     Route: 048
  3. LIPITOR [Concomitant]
     Dosage: 40 MG, UNK
     Route: 048
  4. HEPARIN [Concomitant]
     Dosage: 1110 UNITS/HOUR
     Route: 042
     Dates: start: 20050722
  5. TRASYLOL [Suspect]
     Dosage: LOADING DOSE OF 199 ML, 50CC/HR INFUSION
     Route: 042
     Dates: start: 20050725, end: 20050725
  6. TRASYLOL [Suspect]
     Indication: CORONARY ARTERY BYPASS
     Dosage: 1 ML OF TEST DOSE
     Route: 042
     Dates: start: 20050725, end: 20050725
  7. TRIDIL [Concomitant]
     Dosage: 5 MCG/MIN
     Route: 042
     Dates: start: 20050722
  8. LOPRESSOR [Concomitant]
     Dosage: 25 MG, BID
     Route: 048
  9. PROTAMINE SULFATE [Concomitant]
     Dosage: UNK
     Route: 042
     Dates: start: 20050725
  10. NITROGLYCERIN [Concomitant]
     Dosage: 0.25MCG/MINUTE
     Route: 042
     Dates: start: 20050725
  11. PLAVIX [Concomitant]
     Dosage: 75 MG, QD
     Route: 048
  12. ACTOS [Concomitant]
     Dosage: 45 MG, QD
     Route: 048
  13. NITROGLYCERIN [Concomitant]
     Dosage: 0.4MG AS NEEDED FOR CHEST PAIN
     Route: 060
  14. LOPRESSOR [Concomitant]
     Dosage: 2.5 MG ONCE
     Route: 042
     Dates: start: 20050724
  15. NORVASC [Concomitant]
     Dosage: 5 MG, QD
     Route: 048
  16. ACETYLSALICYLIC ACID SRT [Concomitant]
     Dosage: 325 MG, UNK
     Route: 048
  17. INDOCIN [INDOMETACIN SODIUM] [Concomitant]
     Dosage: 25MG TWICE A DAILY AS NEEDED
     Route: 048

REACTIONS (10)
  - INJURY [None]
  - UNEVALUABLE EVENT [None]
  - ANHEDONIA [None]
  - EMOTIONAL DISTRESS [None]
  - STRESS [None]
  - FEAR [None]
  - DEATH [None]
  - MULTI-ORGAN FAILURE [None]
  - ANXIETY [None]
  - PAIN [None]
